FAERS Safety Report 8910011 (Version 1)
Quarter: 2012Q4

REPORT INFORMATION
  Report Type: 
  Country: FR (occurrence: FR)
  Receive Date: 20121114
  Receipt Date: 20121114
  Transmission Date: 20130627
  Serious: No
  Sender: FDA-Public Use
  Company Number: FR-009507513-1210FRA014540

PATIENT
  Age: 60 Year
  Sex: Female

DRUGS (1)
  1. DIPROSONE [Suspect]
     Indication: DIABETIC RETINOPATHY
     Dosage: UNK, Once
     Route: 047
     Dates: start: 20120911, end: 20120911

REACTIONS (4)
  - Ocular hyperaemia [Recovered/Resolved]
  - Eye irritation [Recovered/Resolved]
  - Incorrect route of drug administration [Recovered/Resolved]
  - Medication error [Recovered/Resolved]
